FAERS Safety Report 10144796 (Version 1)
Quarter: 2014Q2

REPORT INFORMATION
  Report Type: Spontaneous
  Country: US (occurrence: US)
  Receive Date: 20140430
  Receipt Date: 20140430
  Transmission Date: 20141212
  Serious: No
  Sender: FDA-Public Use
  Company Number: US-SA-2013SA102568

PATIENT
  Age: 81 Year
  Sex: Female

DRUGS (1)
  1. LOVENOX [Suspect]
     Route: 065
     Dates: start: 20130929

REACTIONS (4)
  - Hypertension [Not Recovered/Not Resolved]
  - Skin discolouration [Not Recovered/Not Resolved]
  - Drug dose omission [Unknown]
  - Malaise [Not Recovered/Not Resolved]
